FAERS Safety Report 5050608-8 (Version None)
Quarter: 2006Q3

REPORT INFORMATION
  Report Type: 
  Country: None (occurrence: None)
  Receive Date: 20060707
  Receipt Date: 20060623
  Transmission Date: 20061208
  Serious: Yes (Death)
  Sender: FDA-Public Use
  Company Number: RS006060-J

PATIENT
  Age: 89 Year
  Sex: Male

DRUGS (9)
  1. RABEPRAZOLE SODIUM [Suspect]
     Indication: REFLUX OESOPHAGITIS
     Dosage: 10 MG, 1 IN 1 D, ORAL
     Route: 048
     Dates: start: 20060423, end: 20060430
  2. OMEPRAZOLE [Suspect]
     Indication: REFLUX OESOPHAGITIS
     Dosage: 20 MG, 1 IN 1 D, INTRAVENOUS
     Route: 042
     Dates: start: 20060420, end: 20060422
  3. SELBEX                 (TEPRENONE) [Suspect]
     Dosage: 150 MG, 3 IN 1 D, ORAL
     Route: 048
     Dates: start: 20060423
  4. MAGMITT               (MAGNESIUM OXIDE) [Suspect]
     Indication: CONSTIPATION
     Dosage: 750 MG, 3 IN 1 D, ORAL
     Route: 048
     Dates: start: 20060423
  5. HALTHROW                     (TAMSULOSIN HYDROCHLORIDE) [Suspect]
     Indication: BENIGN PROSTATIC HYPERPLASIA
     Dosage: 0.2 MG, 1 IN 1 D, ORAL
     Route: 048
     Dates: start: 20060425
  6. FLUMARIN                    (FLOMOXEF SODIUM) [Suspect]
     Indication: C-REACTIVE PROTEIN INCREASED
     Dosage: 2 GM, 2 IN 1 D, INTRAVENOUS
     Route: 042
     Dates: start: 20060420, end: 20060421
  7. PL [Concomitant]
  8. ADONA (CARBAZOCHROME SODIUM SULFONATE) [Concomitant]
  9. ALESION (EPINASTINE HYDROCHLORIDE) [Concomitant]

REACTIONS (6)
  - CARDIO-RESPIRATORY ARREST [None]
  - DYSPNOEA [None]
  - HAEMATEMESIS [None]
  - INTERSTITIAL LUNG DISEASE [None]
  - OXYGEN SATURATION DECREASED [None]
  - PNEUMONIA [None]
